FAERS Safety Report 6120919-3 (Version None)
Quarter: 2009Q1

REPORT INFORMATION
  Report Type: 
  Country: None (occurrence: None)
  Receive Date: 20090312
  Receipt Date: 20090312
  Transmission Date: 20090719
  Serious: No
  Sender: FDA-Public Use
  Company Number: None

PATIENT
  Age: 56 Year
  Sex: Male

DRUGS (1)
  1. DIGOXIN [Suspect]
     Dosage: TAKE 1 TABLET DAYLY ON TUE-THRU-SAT-AND SUND AND TAKE 2 TAB ON MON-WEDN- AND FRIDAY
     Dates: start: 20080101

REACTIONS (2)
  - CARDIOACTIVE DRUG LEVEL BELOW THERAPEUTIC [None]
  - PRODUCT QUALITY ISSUE [None]
